FAERS Safety Report 17884649 (Version 1)
Quarter: 2020Q2

REPORT INFORMATION
  Report Type: Report from Study
  Country: ES (occurrence: ES)
  Receive Date: 20200611
  Receipt Date: 20200611
  Transmission Date: 20200714
  Serious: Yes (Death, Hospitalization)
  Sender: FDA-Public Use
  Company Number: ES-MYLANLABS-2020M1055283

PATIENT
  Age: 11 Year
  Sex: Male

DRUGS (2)
  1. TOCILIZUMAB. [Suspect]
     Active Substance: TOCILIZUMAB
     Indication: CYTOKINE RELEASE SYNDROME
     Dosage: RECEIVED 2 DOSES
     Route: 065
  2. PREDNISONE. [Suspect]
     Active Substance: PREDNISONE
     Indication: CYTOKINE RELEASE SYNDROME
     Dosage: RECEIVED 2 DOSES
     Route: 065

REACTIONS (1)
  - Drug ineffective [Fatal]
